FAERS Safety Report 11878650 (Version 1)
Quarter: 2015Q4

REPORT INFORMATION
  Report Type: Spontaneous
  Country: US (occurrence: None)
  Receive Date: 20151229
  Receipt Date: 20151229
  Transmission Date: 20160305
  Serious: Yes (Other)
  Sender: FDA-Public Use
  Company Number: None

PATIENT
  Age: 43 Year
  Sex: Female
  Weight: 53.52 kg

DRUGS (12)
  1. NIFEDIPINE. [Concomitant]
     Active Substance: NIFEDIPINE
  2. VITAMIN B [Concomitant]
     Active Substance: VITAMIN B
  3. ALPHA LIPOIC [Concomitant]
  4. TEA [Concomitant]
     Active Substance: TEA LEAF
  5. DYSPORT [Suspect]
     Active Substance: ABOBOTULINUMTOXINA
     Indication: SKIN WRINKLING
     Dosage: 50
     Route: 030
  6. DULUXORINE [Concomitant]
  7. PROBIOTIC [Concomitant]
     Active Substance: PROBIOTICS NOS
  8. ARMOUR THYROID [Concomitant]
     Active Substance: THYROID, PORCINE\THYROID, UNSPECIFIED
  9. CONJUGATED LINOLEIC [Concomitant]
  10. MERATRIM [Concomitant]
  11. FISH OIL [Concomitant]
     Active Substance: FISH OIL
  12. CALCIUM [Concomitant]
     Active Substance: CALCIUM

REACTIONS (4)
  - Vision blurred [None]
  - Headache [None]
  - Eyelid ptosis [None]
  - Visual acuity reduced [None]

NARRATIVE: CASE EVENT DATE: 20151227
